FAERS Safety Report 5940964-8 (Version None)
Quarter: 2008Q4

REPORT INFORMATION
  Report Type: 
  Country: None (occurrence: None)
  Receive Date: 20081104
  Receipt Date: 20081027
  Transmission Date: 20090506
  Serious: Yes (Hospitalization)
  Sender: FDA-Public Use
  Company Number: US-ELI_LILLY_AND_COMPANY-US200810006814

PATIENT
  Sex: Female

DRUGS (3)
  1. HUMATROPE [Suspect]
     Dosage: UNK, UNKNOWN
     Dates: start: 20080101, end: 20081023
  2. TOPAMAX [Concomitant]
     Indication: MENTAL DISORDER
     Dosage: UNK, UNK
     Dates: end: 20081023
  3. LIPITOR [Concomitant]
     Dates: end: 20081023

REACTIONS (6)
  - COMA [None]
  - FEELING ABNORMAL [None]
  - GAIT DISTURBANCE [None]
  - HEPATIC ENZYME INCREASED [None]
  - NAUSEA [None]
  - RENAL FUNCTION TEST ABNORMAL [None]
